FAERS Safety Report 15488839 (Version 5)
Quarter: 2019Q1

REPORT INFORMATION
  Report Type: Spontaneous
  Country: US (occurrence: US)
  Receive Date: 20181011
  Receipt Date: 20190129
  Transmission Date: 20190417
  Serious: Yes (Other)
  Sender: FDA-Public Use
  Company Number: US-PFIZER INC-2018409143

PATIENT
  Age: 51 Year
  Sex: Female
  Weight: 83.9 kg

DRUGS (2)
  1. LYRICA [Suspect]
     Active Substance: PREGABALIN
     Indication: FIBROMYALGIA
     Dosage: 200 MG, 2X/DAY
     Route: 048
  2. LYRICA [Suspect]
     Active Substance: PREGABALIN
     Indication: NEUROPATHY PERIPHERAL
     Dosage: 300 MG, 1X/DAY (1 CAPSULE AT BEDTIME)

REACTIONS (10)
  - Phantom pain [Unknown]
  - Pain in extremity [Unknown]
  - Foot deformity [Unknown]
  - Diabetic foot [Unknown]
  - Visual impairment [Unknown]
  - Diabetic neuropathy [Unknown]
  - Peripheral sensory neuropathy [Unknown]
  - Peripheral swelling [Unknown]
  - Limb injury [Unknown]
  - Pain [Not Recovered/Not Resolved]

NARRATIVE: CASE EVENT DATE: 2015
